FAERS Safety Report 8192930-2 (Version None)
Quarter: 2012Q1

REPORT INFORMATION
  Report Type: 
  Country: None (occurrence: None)
  Receive Date: 20120308
  Receipt Date: 20120228
  Transmission Date: 20120608
  Serious: Yes (Disabling, Other)
  Sender: FDA-Public Use
  Company Number: US-BRISTOL-MYERS SQUIBB COMPANY-16422750

PATIENT
  Age: 69 Year
  Sex: Female
  Weight: 70 kg

DRUGS (6)
  1. COUMADIN [Interacting]
  2. GABAPENTIN [Suspect]
     Indication: NEURALGIA
     Route: 048
  3. TYLENOL-500 [Interacting]
     Indication: PAIN
  4. LYRICA [Suspect]
     Indication: ARTHRITIS
     Dosage: CAPSULES
     Route: 048
  5. GABAPENTIN [Suspect]
     Indication: MYALGIA
     Route: 048
  6. LYRICA [Suspect]
     Indication: FIBROMYALGIA
     Dosage: CAPSULES
     Route: 048

REACTIONS (6)
  - PROTHROMBIN LEVEL DECREASED [None]
  - ACTIVITIES OF DAILY LIVING IMPAIRED [None]
  - LETHARGY [None]
  - ASTHENIA [None]
  - EPISTAXIS [None]
  - DRUG INTERACTION [None]
